FAERS Safety Report 4841233-X (Version None)
Quarter: 2005Q4

REPORT INFORMATION
  Report Type: 
  Country: None (occurrence: None)
  Receive Date: 20051130
  Receipt Date: 20040817
  Transmission Date: 20060501
  Serious: Yes (Hospitalization)
  Sender: FDA-Public Use
  Company Number: GB-ABBOTT-04P-167-0271149-00

PATIENT
  Sex: Female
  Weight: 80 kg

DRUGS (7)
  1. HUMIRA [Suspect]
     Indication: RHEUMATOID ARTHRITIS
     Route: 058
     Dates: start: 20030517
  2. MELOXICAM [Concomitant]
     Indication: DRUG USE FOR UNKNOWN INDICATION
  3. TRAMADOL [Concomitant]
     Indication: DRUG USE FOR UNKNOWN INDICATION
  4. ALENDRONATE SODIUM [Concomitant]
     Indication: DRUG USE FOR UNKNOWN INDICATION
  5. OMEPRAZOLE [Concomitant]
     Indication: DRUG USE FOR UNKNOWN INDICATION
  6. FENTANYL [Concomitant]
     Indication: DRUG USE FOR UNKNOWN INDICATION
  7. MORPHINE SULFATE [Concomitant]
     Indication: DRUG USE FOR UNKNOWN INDICATION

REACTIONS (1)
  - UTERINE POLYP [None]
